FAERS Safety Report 19259655 (Version 2)
Quarter: 2021Q2

REPORT INFORMATION
  Report Type: Report from Study
  Country: US (occurrence: US)
  Receive Date: 20210514
  Receipt Date: 20210617
  Transmission Date: 20210717
  Serious: Yes (Death)
  Sender: FDA-Public Use
  Company Number: US-BIOGEN-2021BI01009849

PATIENT
  Age: 7 Year
  Sex: Male
  Weight: 14 kg

DRUGS (1)
  1. SPINRAZA [Suspect]
     Active Substance: NUSINERSEN
     Indication: SPINAL MUSCULAR ATROPHY
     Route: 065
     Dates: start: 20170913, end: 20201130

REACTIONS (6)
  - Abdominal pain [Unknown]
  - Panic reaction [Unknown]
  - Hypersomnia [Unknown]
  - Scoliosis [Unknown]
  - Cardio-respiratory arrest [Fatal]
  - Vomiting [Recovered/Resolved]

NARRATIVE: CASE EVENT DATE: 20201201
